FAERS Safety Report 19702292 (Version 2)
Quarter: 2022Q1

REPORT INFORMATION
  Report Type: Other
  Country: US (occurrence: None)
  Receive Date: 20210814
  Receipt Date: 20220207
  Transmission Date: 20220424
  Serious: Yes (Other)
  Sender: FDA-Public Use
  Company Number: US-ROCHE-2885084

PATIENT
  Sex: Male

DRUGS (1)
  1. ESBRIET [Suspect]
     Active Substance: PIRFENIDONE
     Indication: Idiopathic pulmonary fibrosis
     Dosage: TAKE 1 TABLET BY MOUTH 3 TIMES A DAY WITH FOOD
     Route: 048

REACTIONS (8)
  - Cardiac failure congestive [Unknown]
  - Pulmonary hypertension [Unknown]
  - Apathy [Unknown]
  - Chronic obstructive pulmonary disease [Unknown]
  - Skin atrophy [Unknown]
  - Wound haemorrhage [Unknown]
  - Wound [Unknown]
  - Cardiac disorder [Unknown]
